FAERS Safety Report 6460065-2 (Version None)
Quarter: 2009Q4

REPORT INFORMATION
  Report Type: 
  Country: None (occurrence: None)
  Receive Date: 20091129
  Receipt Date: 20091119
  Transmission Date: 20100525
  Serious: Yes (Life-Threatening, Hospitalization)
  Sender: FDA-Public Use
  Company Number: PHHO2009AU07426

PATIENT
  Sex: Female
  Weight: 64 kg

DRUGS (2)
  1. AMN107 AMN+CAP [Suspect]
     Indication: CHRONIC MYELOID LEUKAEMIA
     Dosage: 800 MG
     Route: 048
     Dates: start: 20050816, end: 20090623
  2. AMN107 AMN+CAP [Suspect]
     Dosage: UNK
     Route: 048
     Dates: start: 20091002

REACTIONS (10)
  - ACUTE MYOCARDIAL INFARCTION [None]
  - ANGINA PECTORIS [None]
  - AORTIC STENOSIS [None]
  - AORTIC VALVE REPLACEMENT [None]
  - CARDIAC OPERATION [None]
  - CHEST PAIN [None]
  - CORONARY ARTERY BYPASS [None]
  - DYSPNOEA [None]
  - TROPONIN INCREASED [None]
  - VENTRICULAR FAILURE [None]
